FAERS Safety Report 12762427 (Version 9)
Quarter: 2017Q1

REPORT INFORMATION
  Report Type: Spontaneous
  Country: US (occurrence: US)
  Receive Date: 20160920
  Receipt Date: 20170331
  Transmission Date: 20170428
  Serious: Yes (Other)
  Sender: FDA-Public Use
  Company Number: PHEH2016US022812

PATIENT
  Age: 82 Year
  Sex: Female

DRUGS (10)
  1. RECLAST [Suspect]
     Active Substance: ZOLEDRONIC ACID
     Dosage: 5 MG, Q12MO (FOURTH INFUSION)
     Route: 042
     Dates: start: 20160715
  2. RECLAST [Suspect]
     Active Substance: ZOLEDRONIC ACID
     Dosage: UNK, SECOND INFUSION
     Route: 041
  3. COQ10 [Concomitant]
     Active Substance: UBIDECARENONE
     Indication: PRODUCT USED FOR UNKNOWN INDICATION
     Route: 065
  4. LESCOL XL [Concomitant]
     Active Substance: FLUVASTATIN SODIUM
     Indication: BLOOD CHOLESTEROL INCREASED
     Dosage: 80 MG, UNK
     Route: 065
  5. CALCIUM [Concomitant]
     Active Substance: CALCIUM
     Indication: PRODUCT USED FOR UNKNOWN INDICATION
     Route: 065
  6. VITAMIN E [Concomitant]
     Active Substance: .ALPHA.-TOCOPHEROL
     Indication: PRODUCT USED FOR UNKNOWN INDICATION
     Route: 065
  7. RECLAST [Suspect]
     Active Substance: ZOLEDRONIC ACID
     Indication: OSTEOPOROSIS
     Dosage: 1 DF, UNK
     Route: 041
  8. RECLAST [Suspect]
     Active Substance: ZOLEDRONIC ACID
     Dosage: UNK, THIRD INFUSION
     Route: 041
  9. FISH OIL [Concomitant]
     Active Substance: FISH OIL
     Indication: PRODUCT USED FOR UNKNOWN INDICATION
     Route: 065
  10. VITAMIN D [Concomitant]
     Active Substance: CHOLECALCIFEROL
     Indication: PRODUCT USED FOR UNKNOWN INDICATION
     Route: 005

REACTIONS (53)
  - Eye irritation [Recovered/Resolved]
  - Tooth loss [Not Recovered/Not Resolved]
  - Arthropathy [Unknown]
  - Movement disorder [Unknown]
  - Carpal tunnel syndrome [Unknown]
  - Tremor [Unknown]
  - Toothache [Unknown]
  - Pruritus [Unknown]
  - Bone pain [Unknown]
  - Dyspnoea [Unknown]
  - Constipation [Unknown]
  - Back pain [Not Recovered/Not Resolved]
  - Major depression [Unknown]
  - Feeding disorder [Unknown]
  - Anosmia [Unknown]
  - Acute sinusitis [Unknown]
  - Osteoarthritis [Unknown]
  - Pyrexia [Unknown]
  - Muscle spasms [Recovered/Resolved]
  - Intervertebral disc protrusion [Unknown]
  - Dermatitis atopic [Unknown]
  - Vomiting [Unknown]
  - Abdominal pain [Unknown]
  - Eye pain [Recovered/Resolved]
  - Bronchitis [Unknown]
  - Pain in extremity [Not Recovered/Not Resolved]
  - Arthralgia [Not Recovered/Not Resolved]
  - Influenza like illness [Recovered/Resolved]
  - Abasia [Not Recovered/Not Resolved]
  - Spondylolisthesis [Unknown]
  - Feeling abnormal [Unknown]
  - Lumbar spinal stenosis [Unknown]
  - Eye pain [Not Recovered/Not Resolved]
  - Glaucoma [Not Recovered/Not Resolved]
  - Loose tooth [Not Recovered/Not Resolved]
  - Bone disorder [Unknown]
  - Rheumatoid arthritis [Unknown]
  - Mastication disorder [Unknown]
  - Plantar fascial fibromatosis [Unknown]
  - Memory impairment [Unknown]
  - Mental disorder [Unknown]
  - Speech disorder [Not Recovered/Not Resolved]
  - Intraocular pressure increased [Unknown]
  - Feeling cold [Unknown]
  - Jaw disorder [Unknown]
  - Blood cholesterol increased [Unknown]
  - Bone loss [Unknown]
  - Chondropathy [Unknown]
  - Pain [Unknown]
  - Gastrooesophageal reflux disease [Unknown]
  - Fatigue [Unknown]
  - Chest pain [Unknown]
  - Paraesthesia [Unknown]

NARRATIVE: CASE EVENT DATE: 20160724
